FAERS Safety Report 11257962 (Version 3)
Quarter: 2015Q4

REPORT INFORMATION
  Report Type: Spontaneous
  Country: SE (occurrence: SE)
  Receive Date: 20150710
  Receipt Date: 20151001
  Transmission Date: 20160304
  Serious: Yes (Death, Other)
  Sender: FDA-Public Use
  Company Number: SE-JNJFOC-20150703280

PATIENT
  Age: 56 Year
  Sex: Female

DRUGS (16)
  1. THERALEN [Concomitant]
     Active Substance: TRIMEPRAZINE
     Route: 065
  2. PROPYLESS [Concomitant]
     Route: 065
  3. FLUTIVATE [Concomitant]
     Route: 065
  4. IMOVANE [Concomitant]
     Active Substance: ZOPICLONE
     Route: 065
  5. PREDNISOLON [Concomitant]
     Active Substance: PREDNISOLONE
     Indication: ARTHRITIS
     Route: 065
     Dates: start: 20120816
  6. VENLAFAXINE [Concomitant]
     Active Substance: VENLAFAXINE HYDROCHLORIDE
     Route: 065
  7. SIMPONI [Suspect]
     Active Substance: GOLIMUMAB
     Indication: RHEUMATOID ARTHRITIS
     Route: 058
     Dates: start: 20120801, end: 20141027
  8. FOLACIN [Concomitant]
     Active Substance: FOLIC ACID
     Route: 065
  9. VENLAFAXINE [Concomitant]
     Active Substance: VENLAFAXINE HYDROCHLORIDE
     Route: 065
  10. OMEPRAZOLE. [Concomitant]
     Active Substance: OMEPRAZOLE
     Route: 065
  11. CALCICHEW-D3 CITRON [Concomitant]
     Dosage: 500 MG/400 IE
     Route: 065
  12. KETOPROFEN. [Concomitant]
     Active Substance: KETOPROFEN
     Route: 065
  13. PANODIL [Concomitant]
     Active Substance: ACETAMINOPHEN
     Route: 065
  14. ATARAX [Concomitant]
     Active Substance: HYDROXYZINE\HYDROXYZINE HYDROCHLORIDE
     Route: 065
  15. PREDNISOLON [Concomitant]
     Active Substance: PREDNISOLONE
     Indication: ARTHRITIS
     Route: 065
  16. METOTAB [Concomitant]
     Active Substance: METHOTREXATE SODIUM
     Indication: ARTHRITIS
     Route: 065
     Dates: start: 20061017

REACTIONS (3)
  - Pneumonia [Fatal]
  - Infected dermal cyst [Unknown]
  - Infectious pleural effusion [Fatal]

NARRATIVE: CASE EVENT DATE: 2013
